FAERS Safety Report 16746926 (Version 1)
Quarter: 2019Q3

REPORT INFORMATION
  Report Type: Spontaneous
  Country: US (occurrence: US)
  Receive Date: 20190827
  Receipt Date: 20190827
  Transmission Date: 20191005
  Serious: Yes (Other)
  Sender: FDA-Public Use
  Company Number: US-ROCHE-2392954

PATIENT
  Age: 22 Year
  Sex: Female

DRUGS (3)
  1. DIAZEPAM. [Suspect]
     Active Substance: DIAZEPAM
     Indication: LENNOX-GASTAUT SYNDROME
     Route: 065
  2. CLONAZEPAM. [Suspect]
     Active Substance: CLONAZEPAM
     Indication: LENNOX-GASTAUT SYNDROME
     Route: 065
  3. CHLORMETHIAZOLE [Suspect]
     Active Substance: CLOMETHIAZOLE
     Indication: LENNOX-GASTAUT SYNDROME
     Route: 065

REACTIONS (1)
  - Status epilepticus [Unknown]
